FAERS Safety Report 4351960-9 (Version None)
Quarter: 2004Q2

REPORT INFORMATION
  Report Type: 
  Country: None (occurrence: None)
  Receive Date: 20040429
  Receipt Date: 20040205
  Transmission Date: 20050107
  Serious: No
  Sender: FDA-Public Use
  Company Number: 2004-113005-NL

PATIENT
  Age: 36 Year
  Sex: Female
  Weight: 54.43 kg

DRUGS (4)
  1. NUVARING [Suspect]
     Indication: CONTRACEPTION
     Dosage: DF DAILY
     Dates: start: 20040118
  2. ZOLOFT [Concomitant]
  3. SEROQUEL [Concomitant]
  4. CLOZAPINE [Concomitant]

REACTIONS (1)
  - METRORRHAGIA [None]
